FAERS Safety Report 6516257-7 (Version None)
Quarter: 2009Q4

REPORT INFORMATION
  Report Type: 
  Country: None (occurrence: None)
  Receive Date: 20091215
  Receipt Date: 20090723
  Transmission Date: 20100525
  Serious: Yes (Hospitalization)
  Sender: FDA-Public Use
  Company Number: 647736

PATIENT
  Age: 56 Year
  Sex: Male
  Weight: 79.8 kg

DRUGS (5)
  1. TICLID [Suspect]
     Indication: ANTICOAGULANT THERAPY
     Dosage: 2 PER DAY ORAL
     Route: 048
     Dates: start: 20090605
  2. NIACIN (NIACIN) [Concomitant]
  3. SKELAXIN [Concomitant]
  4. DICLOFENAC SODIUM [Concomitant]
  5. TRAMADOL HCL [Concomitant]

REACTIONS (1)
  - RASH [None]
